FAERS Safety Report 22090262 (Version 1)
Quarter: 2023Q1

REPORT INFORMATION
  Report Type: Spontaneous
  Country: US (occurrence: None)
  Receive Date: 20230313
  Receipt Date: 20230313
  Transmission Date: 20230418
  Serious: Yes (Other)
  Sender: FDA-Public Use
  Company Number: None

PATIENT

DRUGS (11)
  1. LACHESIS MUTUS [Suspect]
     Active Substance: LACHESIS MUTA VENOM
     Indication: Migraine
     Dosage: FREQUENCY : DAILY;?
     Dates: start: 20220903, end: 202210
  2. MAGNESIUM [Suspect]
     Active Substance: MAGNESIUM
     Indication: Migraine
     Dosage: FREQUENCY : DAILY;?
     Route: 048
     Dates: start: 20221001, end: 20230121
  3. TYLENOL [Suspect]
     Active Substance: ACETAMINOPHEN
     Dosage: 1000-2000 MG  AS NEEDED
     Route: 048
  4. ACETAMINOPHEN [Suspect]
     Active Substance: ACETAMINOPHEN
     Route: 048
  5. EXCEDRIN MIGRAINE [Suspect]
     Active Substance: ACETAMINOPHEN\ASPIRIN\CAFFEINE
     Route: 048
  6. IBUPROFEN [Suspect]
     Active Substance: IBUPROFEN
     Route: 048
  7. REGLAN [Suspect]
     Active Substance: METOCLOPRAMIDE HYDROCHLORIDE
     Route: 048
  8. ASPIRIN [Suspect]
     Active Substance: ASPIRIN
     Route: 048
  9. SUMATRIPTAN [Suspect]
     Active Substance: SUMATRIPTAN
     Route: 048
  10. PRENATAL VITAMIN [Concomitant]
  11. VITAMIN B2 [Suspect]
     Active Substance: RIBOFLAVIN
     Dosage: 3-  4 TIMES AWEEK
     Dates: start: 20211030

REACTIONS (3)
  - Premature baby [None]
  - Maternal exposure during pregnancy [None]
  - Foetal exposure during pregnancy [None]

NARRATIVE: CASE EVENT DATE: 20230307
